FAERS Safety Report 6312166-7 (Version None)
Quarter: 2009Q3

REPORT INFORMATION
  Report Type: 
  Country: None (occurrence: None)
  Receive Date: 20090813
  Receipt Date: 20090813
  Transmission Date: 20100115
  Serious: Yes (Hospitalization)
  Sender: FDA-Public Use
  Company Number: None

PATIENT
  Age: 73 Year
  Sex: Male
  Weight: 63 kg

DRUGS (1)
  1. BENDAMUSTINE [Suspect]
     Indication: B-CELL LYMPHOMA
     Dosage: 165 MG QD IV DRIP
     Route: 041
     Dates: start: 20090629, end: 20090630

REACTIONS (2)
  - PARANEOPLASTIC PEMPHIGUS [None]
  - STEVENS-JOHNSON SYNDROME [None]
